FAERS Safety Report 5343252-6 (Version None)
Quarter: 2007Q2

REPORT INFORMATION
  Report Type: 
  Country: None (occurrence: None)
  Receive Date: 20070416
  Receipt Date: 20070212
  Transmission Date: 20071010
  Serious: No
  Sender: FDA-Public Use
  Company Number: 2007SP000468

PATIENT
  Age: 53 Year
  Sex: Female
  Weight: 72.5755 kg

DRUGS (5)
  1. LUNESTA [Suspect]
     Indication: INSOMNIA
     Dosage: 3 MG; HS; ORAL
     Route: 048
     Dates: start: 20070205, end: 20070209
  2. PAXIL [Concomitant]
  3. PRILOSEC [Concomitant]
  4. LAMOTRIGINE [Concomitant]
  5. TRAZODONE HCL [Concomitant]

REACTIONS (1)
  - DEPRESSION [None]
